FAERS Safety Report 4737965-4 (Version None)
Quarter: 2005Q3

REPORT INFORMATION
  Report Type: 
  Country: None (occurrence: None)
  Receive Date: 20050809
  Receipt Date: 20040930
  Transmission Date: 20060218
  Serious: Yes (Other)
  Sender: FDA-Public Use
  Company Number: PHEH2004US10539

PATIENT
  Age: 69 Year
  Sex: Female

DRUGS (1)
  1. ZOMETA [Suspect]
     Indication: METASTASES TO BONE
     Dosage: UNK QMO
     Route: 042
     Dates: start: 20030101, end: 20050101

REACTIONS (21)
  - BLOOD CREATININE INCREASED [None]
  - BONE DEBRIDEMENT [None]
  - ESCHERICHIA INFECTION [None]
  - FISTULA [None]
  - FISTULA REPAIR [None]
  - IMPAIRED HEALING [None]
  - INFECTION [None]
  - INJURY [None]
  - JAW DISORDER [None]
  - OSTEOMYELITIS [None]
  - OSTEONECROSIS [None]
  - RASH PAPULAR [None]
  - SEQUESTRECTOMY [None]
  - SINUS OPERATION [None]
  - SINUSITIS [None]
  - THERAPY NON-RESPONDER [None]
  - TOOTH ABSCESS [None]
  - TOOTH DISORDER [None]
  - TOOTH EXTRACTION [None]
  - TOOTH LOSS [None]
  - WOUND SECRETION [None]
